FAERS Safety Report 20025089 (Version 2)
Quarter: 2021Q4

REPORT INFORMATION
  Report Type: Spontaneous
  Country: BR (occurrence: BR)
  Receive Date: 20211102
  Receipt Date: 20211206
  Transmission Date: 20220304
  Serious: Yes (Other)
  Sender: FDA-Public Use
  Company Number: BR-ORGANON-O2111BRA000078

PATIENT
  Sex: Female

DRUGS (1)
  1. ETONOGESTREL [Suspect]
     Active Substance: ETONOGESTREL
     Dosage: 1 IMPLANT
     Route: 059

REACTIONS (3)
  - Device expulsion [Recovered/Resolved]
  - Device placement issue [Recovered/Resolved]
  - Complication of device insertion [Recovered/Resolved]
